FAERS Safety Report 6511570-1 (Version None)
Quarter: 2009Q4

REPORT INFORMATION
  Report Type: 
  Country: None (occurrence: None)
  Receive Date: 20091222
  Receipt Date: 20090423
  Transmission Date: 20100525
  Serious: No
  Sender: FDA-Public Use
  Company Number: US-ASTRAZENECA-2009UW10153

PATIENT
  Age: 63 Year
  Sex: Female

DRUGS (5)
  1. CRESTOR [Suspect]
     Route: 048
     Dates: start: 20090410
  2. DIOVAN [Concomitant]
     Indication: BLOOD PRESSURE
  3. GABATENTIN [Concomitant]
     Indication: PARAESTHESIA
  4. PROTONIX [Concomitant]
     Indication: GASTROOESOPHAGEAL REFLUX DISEASE
  5. SYNTHROID [Concomitant]
     Indication: THYROID NEOPLASM

REACTIONS (2)
  - HYPOTENSION [None]
  - PAIN IN EXTREMITY [None]
